FAERS Safety Report 5040199-X (Version None)
Quarter: 2006Q2

REPORT INFORMATION
  Report Type: 
  Country: None (occurrence: None)
  Receive Date: 20060630
  Receipt Date: 20060621
  Transmission Date: 20061013
  Serious: Yes (Hospitalization)
  Sender: FDA-Public Use
  Company Number: BR-MERCK-0606BRA00033

PATIENT
  Age: 55 Year
  Sex: Female

DRUGS (1)
  1. HYZAAR [Suspect]
     Indication: HYPERTENSION
     Route: 048
     Dates: start: 20060515, end: 20060518

REACTIONS (6)
  - HYPERHIDROSIS [None]
  - MUSCULAR WEAKNESS [None]
  - OVERDOSE [None]
  - POISONING [None]
  - SALIVARY HYPERSECRETION [None]
  - VOMITING [None]
